FAERS Safety Report 5623519-4 (Version None)
Quarter: 2008Q1

REPORT INFORMATION
  Report Type: 
  Country: None (occurrence: None)
  Receive Date: 20080212
  Receipt Date: 20080201
  Transmission Date: 20080703
  Serious: Yes (Other)
  Sender: FDA-Public Use
  Company Number: US-PFIZER INC-2008010949

PATIENT
  Sex: Female
  Weight: 73.181 kg

DRUGS (4)
  1. XALATAN [Suspect]
     Indication: GLAUCOMA
     Dosage: FREQ:DAILY
     Route: 047
  2. AVANDIA [Concomitant]
  3. GLUCOTROL [Concomitant]
  4. INSULIN [Concomitant]

REACTIONS (7)
  - CATARACT [None]
  - EYE IRRITATION [None]
  - EYE PRURITUS [None]
  - HYPERSENSITIVITY [None]
  - LACRIMATION INCREASED [None]
  - MUSCLE SPASMS [None]
  - SURGERY [None]
